FAERS Safety Report 5366949-0 (Version None)
Quarter: 2007Q2

REPORT INFORMATION
  Report Type: 
  Country: None (occurrence: None)
  Receive Date: 20070622
  Receipt Date: 20070612
  Transmission Date: 20071010
  Serious: Yes (Other)
  Sender: FDA-Public Use
  Company Number: US-KINGPHARMUSA00001-K200700728

PATIENT

DRUGS (5)
  1. SONATA [Suspect]
     Route: 048
  2. LUNESTA [Suspect]
     Route: 048
  3. AMBIEN [Suspect]
     Route: 048
  4. ALCOHOL /00002101/ [Suspect]
     Route: 048
  5. TOPROL-XL [Concomitant]

REACTIONS (6)
  - CONFUSIONAL STATE [None]
  - IMPAIRED DRIVING ABILITY [None]
  - MEDICAL OBSERVATION ABNORMAL [None]
  - OCULAR HYPERAEMIA [None]
  - PARASOMNIA [None]
  - ROAD TRAFFIC ACCIDENT [None]
